FAERS Safety Report 11126959 (Version 1)
Quarter: 2015Q2

REPORT INFORMATION
  Report Type: Spontaneous
  Country: US (occurrence: US)
  Receive Date: 20150521
  Receipt Date: 20150521
  Transmission Date: 20150821
  Serious: Yes (Death, Hospitalization, Other)
  Sender: FDA-Public Use
  Company Number: US-JNJFOC-20150509860

PATIENT
  Age: 26 Year
  Sex: Male

DRUGS (2)
  1. LOPERAMIDE HYDROCHLORIDE. [Suspect]
     Active Substance: LOPERAMIDE HYDROCHLORIDE
     Indication: DRUG DEPENDENCE
     Route: 048
  2. LOPERAMIDE HYDROCHLORIDE. [Suspect]
     Active Substance: LOPERAMIDE HYDROCHLORIDE
     Indication: DRUG DEPENDENCE
     Route: 048

REACTIONS (15)
  - Suicide attempt [Unknown]
  - Drug withdrawal syndrome [Unknown]
  - Hyperhidrosis [Unknown]
  - Death [Fatal]
  - Self-medication [Unknown]
  - Drug dependence [Unknown]
  - Diarrhoea [Unknown]
  - Anxiety [Unknown]
  - Cardiac arrest [Recovered/Resolved]
  - Intentional overdose [Unknown]
  - Product use issue [Unknown]
  - Yawning [Unknown]
  - Tremor [Unknown]
  - Lacrimation increased [Unknown]
  - Vomiting [Unknown]
